FAERS Safety Report 8300334-4 (Version None)
Quarter: 2012Q1

REPORT INFORMATION
  Report Type: 
  Country: None (occurrence: None)
  Receive Date: 20120326
  Receipt Date: 20110608
  Transmission Date: 20120608
  Serious: Yes (Other)
  Sender: FDA-Public Use
  Company Number: PHHY2011US50437

PATIENT
  Age: 85 Year
  Sex: Male

DRUGS (5)
  1. CALCIUM CARBONATE [Concomitant]
  2. SAW PALMETTO (SERENOA REPENS) [Concomitant]
  3. TASIGNA [Suspect]
     Dosage: 400 MG, BID, ORAL
     Route: 048
  4. SPRYCEL [Suspect]
  5. VITAMIN B12 [Concomitant]

REACTIONS (2)
  - HEPATIC ENZYME INCREASED [None]
  - PULMONARY OEDEMA [None]
